FAERS Safety Report 25890242 (Version 2)
Quarter: 2025Q4

REPORT INFORMATION
  Report Type: Report from Study
  Country: KR (occurrence: KP)
  Receive Date: 20251007
  Receipt Date: 20251106
  Transmission Date: 20260118
  Serious: Yes (Life-Threatening, Hospitalization, Other)
  Sender: AUROBINDO
  Company Number: KR-AUROBINDO-AUR-APL-2025-050868

PATIENT
  Age: 80 Year
  Sex: Male
  Weight: 52.2 kg

DRUGS (53)
  1. BELINOSTAT [Suspect]
     Active Substance: BELINOSTAT
     Indication: Peripheral T-cell lymphoma unspecified stage IV
     Dosage: 600 MILLIGRAM/SQ. METER
     Route: 065
     Dates: start: 20250917, end: 20250917
  2. BELINOSTAT [Suspect]
     Active Substance: BELINOSTAT
     Dosage: 600 MILLIGRAM/SQ. METER
     Route: 065
     Dates: start: 20250918, end: 20250918
  3. BELINOSTAT [Suspect]
     Active Substance: BELINOSTAT
     Dosage: 600 MILLIGRAM/SQ. METER
     Route: 065
     Dates: start: 20250919, end: 20250919
  4. BELINOSTAT [Suspect]
     Active Substance: BELINOSTAT
     Dosage: 600 MILLIGRAM/SQ. METER
     Route: 065
     Dates: start: 20250922, end: 20250922
  5. BELINOSTAT [Suspect]
     Active Substance: BELINOSTAT
     Dosage: 600 MILLIGRAM/SQ. METER
     Route: 065
     Dates: start: 20250923, end: 20250923
  6. BELINOSTAT [Suspect]
     Active Substance: BELINOSTAT
     Dosage: 600 MILLIGRAM/SQ. METER
     Route: 065
     Dates: start: 20251013, end: 20251013
  7. BELINOSTAT [Suspect]
     Active Substance: BELINOSTAT
     Dosage: 600 MILLIGRAM/SQ. METER
     Route: 065
     Dates: start: 20251014, end: 20251014
  8. BELINOSTAT [Suspect]
     Active Substance: BELINOSTAT
     Dosage: 600 MILLIGRAM/SQ. METER
     Route: 065
     Dates: start: 20251015, end: 20251015
  9. BELINOSTAT [Suspect]
     Active Substance: BELINOSTAT
     Dosage: 600 MILLIGRAM/SQ. METER
     Route: 065
     Dates: start: 20251016, end: 20251016
  10. BELINOSTAT [Suspect]
     Active Substance: BELINOSTAT
     Dosage: 600 MILLIGRAM/SQ. METER
     Route: 065
     Dates: start: 20251017, end: 20251017
  11. CYCLOPHOSPHAMIDE [Suspect]
     Active Substance: CYCLOPHOSPHAMIDE
     Indication: Peripheral T-cell lymphoma unspecified stage IV
     Dosage: 750 MILLIGRAM/SQ. METER
     Route: 065
     Dates: start: 20250917, end: 20250917
  12. CYCLOPHOSPHAMIDE [Suspect]
     Active Substance: CYCLOPHOSPHAMIDE
     Dosage: 562.5 MILLIGRAM/SQ. METER
     Route: 065
     Dates: start: 20251013, end: 20251013
  13. EPIRUBICIN [Suspect]
     Active Substance: EPIRUBICIN
     Indication: Peripheral T-cell lymphoma unspecified stage IV
     Dosage: 50 MILLIGRAM/SQ. METER
     Route: 065
     Dates: start: 20250917, end: 20250917
  14. EPIRUBICIN [Suspect]
     Active Substance: EPIRUBICIN
     Dosage: 37.5 MILLIGRAM/SQ. METER
     Route: 065
     Dates: start: 20251013, end: 20251013
  15. ONCOVIN [Suspect]
     Active Substance: VINCRISTINE SULFATE
     Indication: Peripheral T-cell lymphoma unspecified stage IV
     Dosage: 1.4 MILLIGRAM/SQ. METER
     Route: 065
     Dates: start: 20250917, end: 20250917
  16. ONCOVIN [Suspect]
     Active Substance: VINCRISTINE SULFATE
     Dosage: 1.4 MILLIGRAM/SQ. METER
     Route: 065
     Dates: start: 20251013, end: 20251013
  17. PREDNISONE [Suspect]
     Active Substance: PREDNISONE
     Indication: Peripheral T-cell lymphoma unspecified stage IV
     Dosage: 100 MILLIGRAM
     Route: 065
     Dates: start: 20250917, end: 20250917
  18. PREDNISONE [Suspect]
     Active Substance: PREDNISONE
     Dosage: 100 MILLIGRAM
     Route: 065
     Dates: start: 20250918
  19. PREDNISONE [Suspect]
     Active Substance: PREDNISONE
     Dosage: 100 MILLIGRAM
     Route: 065
     Dates: start: 20250919
  20. PREDNISONE [Suspect]
     Active Substance: PREDNISONE
     Dosage: 100 MILLIGRAM
     Route: 065
     Dates: start: 20250922
  21. PREDNISONE [Suspect]
     Active Substance: PREDNISONE
     Dosage: 100 MILLIGRAM
     Route: 065
     Dates: start: 20250914
  22. PREDNISONE [Suspect]
     Active Substance: PREDNISONE
     Dosage: 100 MILLIGRAM
     Route: 065
     Dates: start: 20250915
  23. PREDNISONE [Suspect]
     Active Substance: PREDNISONE
     Dosage: 100 MILLIGRAM
     Route: 065
     Dates: start: 20250916
  24. PREDNISONE [Suspect]
     Active Substance: PREDNISONE
     Dosage: 100 MILLIGRAM
     Route: 065
     Dates: start: 20250917
  25. FOLIC ACID [Concomitant]
     Active Substance: FOLIC ACID
     Indication: Product used for unknown indication
     Dosage: 1 MILLIGRAM, ONCE A DAY
     Route: 048
     Dates: start: 20250907, end: 20250916
  26. Hemonics [Concomitant]
     Indication: Product used for unknown indication
     Dosage: 1 MILLIGRAM, ONCE A DAY
     Route: 030
     Dates: start: 20250915, end: 20250915
  27. HYGROTON [Concomitant]
     Active Substance: CHLORTHALIDONE
     Indication: Hypertension
     Dosage: 12.5 MILLIGRAM, ONCE A DAY
     Route: 048
     Dates: start: 2015
  28. AMLODIPINE OROTATE [Concomitant]
     Active Substance: AMLODIPINE OROTATE
     Indication: Hypertension
     Dosage: 5 MILLIGRAM, ONCE A DAY
     Route: 048
     Dates: start: 2020
  29. CEFAZOLIN [Concomitant]
     Active Substance: CEFAZOLIN
     Indication: Antibiotic prophylaxis
     Dosage: 1 MILLIGRAM, 3 TIMES A DAY
     Route: 042
     Dates: start: 20250909
  30. Hebron [Concomitant]
     Indication: Productive cough
     Dosage: 25 MILLIGRAM, 3 TIMES A DAY
     Route: 048
     Dates: start: 20250911, end: 20250920
  31. OLIMEL [Concomitant]
     Active Substance: AMINO ACIDS\DEXTROSE\SOYBEAN OIL
     Indication: Supportive care
     Dosage: 1000 MILLILITER, ONCE A DAY
     Route: 042
     Dates: start: 20250910
  32. Solondo [Concomitant]
     Indication: Product used for unknown indication
     Dosage: 100 MILLIGRAM, ONCE A DAY
     Route: 048
     Dates: start: 20250908, end: 20250912
  33. NEULASTA [Concomitant]
     Active Substance: PEGFILGRASTIM
     Indication: Prophylaxis
     Dosage: 0.6 MILLILITER
     Route: 058
     Dates: start: 20250918
  34. TRAMADOL HYDROCHLORIDE [Concomitant]
     Active Substance: TRAMADOL HYDROCHLORIDE
     Indication: Pain management
     Dosage: 50 MILLIGRAM, ONCE A DAY
     Route: 042
     Dates: start: 20250917, end: 20250917
  35. TRAMADOL HYDROCHLORIDE [Concomitant]
     Active Substance: TRAMADOL HYDROCHLORIDE
     Dosage: 50 MILLIGRAM, ONCE A DAY
     Route: 042
     Dates: start: 20250924, end: 20250924
  36. Akynzeo [Concomitant]
     Indication: Prophylaxis
     Dosage: UNK, 1 AS NEEDED
     Route: 048
     Dates: start: 20250917
  37. Combiflex [Concomitant]
     Indication: Nutritional supplementation
     Dosage: 1000 MILLILITER, ONCE A DAY
     Route: 042
     Dates: start: 20250924, end: 20250929
  38. MAXIPIME [Concomitant]
     Active Substance: CEFEPIME HYDROCHLORIDE
     Indication: Bacteraemia
     Dosage: 2 GRAM, TWO TIMES A DAY
     Route: 042
     Dates: start: 20250924, end: 20250928
  39. PHENIRAMINE [Concomitant]
     Active Substance: PHENIRAMINE
     Indication: Premedication
     Dosage: 4 MILLIGRAM, AS NECESSARY
     Route: 042
     Dates: start: 20250924, end: 20250928
  40. Profa [Concomitant]
     Indication: Bacteraemia
     Dosage: 1 GRAM, ONCE A DAY
     Route: 042
     Dates: start: 20250924, end: 20250924
  41. ALBUMIN HUMAN [Concomitant]
     Active Substance: ALBUMIN HUMAN
     Indication: Nutritional supplementation
     Dosage: 100 MILLIGRAM, AS NECESSARY
     Route: 042
     Dates: start: 20250925, end: 20250925
  42. CALCIUM GLUCONATE [Concomitant]
     Active Substance: CALCIUM GLUCONATE
     Indication: Nutritional supplementation
     Dosage: 2 GRAM, ONCE A DAY
     Route: 042
     Dates: start: 20250925, end: 20250925
  43. PROPACETAMOL HYDROCHLORIDE [Concomitant]
     Active Substance: PROPACETAMOL HYDROCHLORIDE
     Indication: Bacteraemia
     Dosage: 1 GRAM, ONCE A DAY
     Route: 042
     Dates: start: 20250925, end: 20250925
  44. DIFLUCAN [Concomitant]
     Active Substance: FLUCONAZOLE
     Indication: Oral candidiasis
     Dosage: 50 MILLIGRAM, ONCE A DAY
     Route: 042
     Dates: start: 20250925, end: 20250927
  45. MAGNESIUM SULFATE [Concomitant]
     Active Substance: MAGNESIUM SULFATE
     Indication: Nutritional supplementation
     Dosage: 4 GRAM, AS NECESSARY
     Route: 042
     Dates: start: 20250925, end: 20250928
  46. POTASSIUM CHLORIDE [Concomitant]
     Active Substance: POTASSIUM CHLORIDE
     Indication: Nutritional supplementation
     Dosage: 40 MILLIEQUIVALENT, AS NECESSARY
     Route: 042
     Dates: start: 20250925, end: 20250928
  47. MEPERIDINE [Concomitant]
     Active Substance: MEPERIDINE
     Indication: Bacteraemia
     Dosage: 25 MILLIGRAM, ONCE A DAY
     Route: 042
     Dates: start: 20250925, end: 20250925
  48. Teicocin [Concomitant]
     Indication: Bacteraemia
     Dosage: 400 MILLIGRAM, ONCE A DAY
     Route: 042
     Dates: start: 20250925, end: 20250928
  49. Phosten [Concomitant]
     Indication: Nutritional supplementation
     Dosage: 40 MILLILITER, AS NECESSARY
     Route: 042
     Dates: start: 20250925, end: 20250928
  50. Ramnos [Concomitant]
     Indication: Nutritional supplementation
     Dosage: 250 MILLIGRAM, ONCE A DAY
     Route: 048
     Dates: start: 20250927, end: 20250928
  51. Fotagel [Concomitant]
     Indication: Diarrhoea
     Dosage: 20 MILLILITER, 3 TIMES A DAY
     Route: 048
     Dates: start: 20250928, end: 20251002
  52. Polybutine [Concomitant]
     Indication: Diarrhoea
     Dosage: 300 MILLIGRAM, TWO TIMES A DAY
     Route: 048
     Dates: start: 20250928, end: 20251002
  53. Cycin [Concomitant]
     Indication: Prophylaxis
     Dosage: 500 MILLIGRAM, TWO TIMES A DAY
     Route: 048
     Dates: start: 20250929, end: 20251011

REACTIONS (8)
  - Neutropenia [Not Recovered/Not Resolved]
  - Klebsiella infection [Recovered/Resolved]
  - Infection [Not Recovered/Not Resolved]
  - Thrombocytopenia [Not Recovered/Not Resolved]
  - Anaemia [Recovered/Resolved]
  - Diarrhoea [Recovered/Resolved]
  - Oral candidiasis [Recovered/Resolved]
  - Ulcer [Recovered/Resolved]

NARRATIVE: CASE EVENT DATE: 20250924
